FAERS Safety Report 7638691-4 (Version None)
Quarter: 2011Q3

REPORT INFORMATION
  Report Type: 
  Country: None (occurrence: None)
  Receive Date: 20110727
  Receipt Date: 20110720
  Transmission Date: 20111222
  Serious: Yes (Life-Threatening, Hospitalization)
  Sender: FDA-Public Use
  Company Number: JP-AMGEN-US408397

PATIENT
  Age: 74 Year
  Sex: Female

DRUGS (5)
  1. SELBEX [Concomitant]
     Dosage: 100 MG, QD
     Route: 048
  2. ETODOLAC [Concomitant]
     Dosage: 400 MG, QD
     Route: 048
  3. FOLIC ACID [Concomitant]
     Dosage: 5 MG, QWK
     Route: 048
     Dates: end: 20100325
  4. ENBREL [Suspect]
     Indication: RHEUMATOID ARTHRITIS
     Dosage: 25 MG, QWK
     Route: 058
     Dates: start: 20100119, end: 20100325
  5. METHOTREXATE [Concomitant]
     Dosage: 4 MG, QWK
     Route: 048
     Dates: end: 20100325

REACTIONS (1)
  - PNEUMOCYSTIS JIROVECI PNEUMONIA [None]
